FAERS Safety Report 12923081 (Version 2)
Quarter: 2016Q4

REPORT INFORMATION
  Report Type: Spontaneous
  Country: US (occurrence: US)
  Receive Date: 20161108
  Receipt Date: 20161205
  Transmission Date: 20170207
  Serious: Yes (Hospitalization)
  Sender: FDA-Public Use
  Company Number: US-MEDA-2016100094

PATIENT
  Age: 49 Year
  Sex: Female

DRUGS (17)
  1. VITAMIN B6 [Concomitant]
     Active Substance: PYRIDOXINE HYDROCHLORIDE
     Dates: start: 2000
  2. POTASSIUM [Concomitant]
     Active Substance: POTASSIUM
     Dates: start: 2000
  3. MOVANTIK [Concomitant]
     Active Substance: NALOXEGOL OXALATE
     Route: 048
  4. METHADONE [Concomitant]
     Active Substance: METHADONE HYDROCHLORIDE
     Indication: PAIN
  5. MAGNESIUM [Concomitant]
     Active Substance: MAGNESIUM
     Indication: PAIN
     Dates: start: 2012
  6. ALPRAZOLAM. [Concomitant]
     Active Substance: ALPRAZOLAM
     Indication: ANXIETY DISORDER
     Route: 048
     Dates: start: 2006
  7. ATORVASTATIN [Concomitant]
     Active Substance: ATORVASTATIN
     Indication: BLOOD CHOLESTEROL ABNORMAL
     Route: 048
     Dates: start: 2011
  8. MULTIVITAMINS [Concomitant]
     Active Substance: VITAMINS
  9. IBUPROFEN. [Concomitant]
     Active Substance: IBUPROFEN
     Dates: start: 2000
  10. TORSEMIDE. [Suspect]
     Active Substance: TORSEMIDE
     Indication: OEDEMA
     Route: 048
     Dates: start: 2008
  11. LYRICA [Concomitant]
     Active Substance: PREGABALIN
     Indication: COMPLEX REGIONAL PAIN SYNDROME
     Dates: start: 200805
  12. ALPRAZOLAM. [Concomitant]
     Active Substance: ALPRAZOLAM
     Indication: DEPRESSION SUICIDAL
     Route: 048
     Dates: start: 2006
  13. FENTANYL. [Concomitant]
     Active Substance: FENTANYL
     Indication: PAIN
     Dates: start: 2016
  14. SEROQUEL [Concomitant]
     Active Substance: QUETIAPINE FUMARATE
     Indication: AFFECTIVE DISORDER
     Route: 048
     Dates: start: 2006
  15. DIAZEPAM. [Concomitant]
     Active Substance: DIAZEPAM
     Route: 048
     Dates: start: 2016
  16. CELECOXIB. [Concomitant]
     Active Substance: CELECOXIB
     Indication: ARTHROPATHY
     Route: 048
     Dates: start: 2016
  17. VITAMIN B12 [Concomitant]
     Active Substance: CYANOCOBALAMIN
     Dates: start: 2000

REACTIONS (7)
  - Crying [Not Recovered/Not Resolved]
  - Vomiting [Not Recovered/Not Resolved]
  - Complex regional pain syndrome [Not Recovered/Not Resolved]
  - Spinal disorder [Recovered/Resolved]
  - Knee arthroplasty [Recovered/Resolved]
  - Mass excision [Recovered/Resolved]
  - Oedema [Recovering/Resolving]

NARRATIVE: CASE EVENT DATE: 200801
